FAERS Safety Report 4286382-2 (Version None)
Quarter: 2004Q1

REPORT INFORMATION
  Report Type: 
  Country: None (occurrence: None)
  Receive Date: 20040126
  Receipt Date: 20031020
  Transmission Date: 20041129
  Serious: Yes (Hospitalization, Other)
  Sender: FDA-Public Use
  Company Number: USA031050402

PATIENT
  Sex: Female

DRUGS (18)
  1. FORTEO [Suspect]
     Dates: start: 20031006
  2. FOSAMAX (ALDENDRONATE SODIUM) [Concomitant]
  3. MIACALCIN [Concomitant]
  4. REMICADE [Concomitant]
  5. ARAVA [Concomitant]
  6. ACETYLSALICYLIC ACID SRT [Concomitant]
  7. CARDIZEM CD (DILTIAZEM HYDRCHOLORIDE) [Concomitant]
  8. CLIMARA [Concomitant]
  9. CELEBREX [Concomitant]
  10. IMDUR [Concomitant]
  11. LANTUS [Concomitant]
  12. KLONOPIN [Concomitant]
  13. LAMISIL [Concomitant]
  14. SINEMET [Concomitant]
  15. ZOLOFT [Concomitant]
  16. DURAGESCIC (FENTANYL) [Concomitant]
  17. LIDODERM (LIDOCAINE0 [Concomitant]
  18. LORTAB [Concomitant]

REACTIONS (4)
  - CORONARY ARTERY SURGERY [None]
  - OEDEMA PERIPHERAL [None]
  - PAIN IN EXTREMITY [None]
  - PULMONARY OEDEMA [None]
